FAERS Safety Report 25584100 (Version 1)
Quarter: 2025Q3

REPORT INFORMATION
  Report Type: Spontaneous
  Country: EU (occurrence: EU)
  Receive Date: 20250721
  Receipt Date: 20250721
  Transmission Date: 20251021
  Serious: Yes (Other)
  Sender: AMGEN
  Company Number: None

PATIENT
  Age: 74 Year
  Sex: Male

DRUGS (2)
  1. KYPROLIS [Suspect]
     Active Substance: CARFILZOMIB
     Indication: Plasma cell myeloma
     Dosage: 130 MILLIGRAM, QWK
     Route: 040
     Dates: start: 20220110, end: 20250627
  2. DARZALEX [Concomitant]
     Active Substance: DARATUMUMAB
     Indication: Plasma cell myeloma
     Dosage: 1800 MILLIGRAM, QMO
     Route: 058
     Dates: start: 20220110, end: 20250627

REACTIONS (1)
  - Heart failure with reduced ejection fraction [Recovering/Resolving]

NARRATIVE: CASE EVENT DATE: 20240101
